FAERS Safety Report 9842830 (Version 2)
Quarter: 2014Q2

REPORT INFORMATION
  Report Type: Report from Study
  Country: US (occurrence: US)
  Receive Date: 20140124
  Receipt Date: 20140505
  Transmission Date: 20141212
  Serious: Yes (Hospitalization, Other)
  Sender: FDA-Public Use
  Company Number: US-GILEAD-2014-0092791

PATIENT
  Age: 58 Year
  Sex: Male
  Weight: 73 kg

DRUGS (7)
  1. RANOLAZINE [Suspect]
     Indication: ANGINA PECTORIS
     Dosage: 500 MG, UNK
     Route: 048
  2. PLAVIX [Concomitant]
     Indication: CORONARY ANGIOPLASTY
  3. PLAVIX [Concomitant]
     Indication: CORONARY ARTERIAL STENT INSERTION
  4. IMDUR [Concomitant]
     Indication: CHEST PAIN
  5. ZESTRIL [Concomitant]
     Indication: HYPERTENSION
  6. ATENOLOL [Concomitant]
     Indication: CORONARY ARTERY DISEASE
  7. ASPIRIN [Concomitant]
     Indication: CORONARY ARTERY DISEASE

REACTIONS (4)
  - Lung cancer metastatic [Unknown]
  - Hepatic cancer [Unknown]
  - Adenocarcinoma [Unknown]
  - Metastases to bone [Unknown]
